FAERS Safety Report 15779498 (Version 4)
Quarter: 2019Q2

REPORT INFORMATION
  Report Type: Spontaneous
  Country: US (occurrence: US)
  Receive Date: 20190101
  Receipt Date: 20190415
  Transmission Date: 20190711
  Serious: No
  Sender: FDA-Public Use
  Company Number: US-ASTRAZENECA-2017SE73088

PATIENT
  Age: 26580 Day
  Sex: Female
  Weight: 90.7 kg

DRUGS (3)
  1. LEVOTHYROXINE. [Concomitant]
     Active Substance: LEVOTHYROXINE
     Indication: THYROID DISORDER
     Route: 048
  2. BYDUREON [Suspect]
     Active Substance: EXENATIDE
     Indication: DIABETES MELLITUS
     Route: 058
     Dates: start: 2011
  3. CLOPIDOGREL [Concomitant]
     Active Substance: CLOPIDOGREL BISULFATE
     Indication: ATRIAL FIBRILLATION

REACTIONS (11)
  - Frustration tolerance decreased [Unknown]
  - Therapeutic response unexpected [Unknown]
  - Gastrointestinal disorder [Unknown]
  - Injection site haemorrhage [Unknown]
  - Injection site pain [Unknown]
  - Intentional device misuse [Unknown]
  - Incorrect dose administered [Unknown]
  - Incorrect disposal of product [Unknown]
  - Device malfunction [Unknown]
  - Contusion [Unknown]
  - Wrong technique in product usage process [Unknown]

NARRATIVE: CASE EVENT DATE: 20190213
